FAERS Safety Report 17325116 (Version 1)
Quarter: 2020Q1

REPORT INFORMATION
  Report Type: Report from Study
  Country: IT (occurrence: IT)
  Receive Date: 20200127
  Receipt Date: 20200127
  Transmission Date: 20200409
  Serious: Yes (Other)
  Sender: FDA-Public Use
  Company Number: IT-ACCORD-091517

PATIENT
  Age: 69 Year
  Sex: Female

DRUGS (4)
  1. TEMOZOLOMIDE. [Suspect]
     Active Substance: TEMOZOLOMIDE
     Indication: NEUROENDOCRINE TUMOUR
     Dosage: A DOSE REDUCTION WAS PERFORMED FOR A FURTHER EIGHT CYCLES. 100 MG/M2
     Dates: start: 201511
  2. OCTREOTIDE/OCTREOTIDE ACETATE [Concomitant]
     Active Substance: OCTREOTIDE ACETATE
     Indication: CARCINOID SYNDROME
     Dosage: EVERY 28 DAYS
     Route: 030
     Dates: start: 2014
  3. CAPECITABINE. [Suspect]
     Active Substance: CAPECITABINE
     Indication: NEUROENDOCRINE TUMOUR
     Dosage: DAILY, DAYS 1-14,A DOSE REDUCTION WAS PERFORMED FOR A FURTHER EIGHT CYCLES.
     Route: 048
     Dates: start: 201511
  4. INSULIN [Concomitant]
     Active Substance: INSULIN NOS
     Indication: DIABETES MELLITUS
     Dates: start: 2014

REACTIONS (3)
  - Cognitive disorder [Unknown]
  - Off label use [Unknown]
  - Thrombocytopenia [Unknown]

NARRATIVE: CASE EVENT DATE: 2015
